FAERS Safety Report 4322686-2 (Version None)
Quarter: 2004Q1

REPORT INFORMATION
  Report Type: 
  Country: None (occurrence: None)
  Receive Date: 20040318
  Receipt Date: 20031021
  Transmission Date: 20041129
  Serious: Yes (Hospitalization)
  Sender: FDA-Public Use
  Company Number: MK200310-0227-1

PATIENT
  Age: 35 Year
  Sex: Male
  Weight: 81.6475 kg

DRUGS (1)
  1. OPTIRAY 320 [Suspect]
     Indication: UROGRAPHY
     Dosage: 140CC, IV, ONCE
     Route: 042
     Dates: start: 20031021, end: 20031021

REACTIONS (3)
  - EXTRAVASATION [None]
  - INJECTION SITE SWELLING [None]
  - MEDICATION ERROR [None]
